FAERS Safety Report 6143722-7 (Version None)
Quarter: 2009Q2

REPORT INFORMATION
  Report Type: 
  Country: None (occurrence: None)
  Receive Date: 20090403
  Receipt Date: 20090401
  Transmission Date: 20091009
  Serious: Yes (Other)
  Sender: FDA-Public Use
  Company Number: GB-JNJCH-2009008876

PATIENT
  Age: 12 Year
  Sex: Female
  Weight: 25.4 kg

DRUGS (1)
  1. SUDAFED 12 HOUR [Suspect]
     Indication: NASAL CONGESTION
     Dosage: TEXT:UNSPECIFIED
     Route: 048
     Dates: start: 20090302, end: 20090302

REACTIONS (3)
  - CONVULSION [None]
  - HALLUCINATION [None]
  - HYPERHIDROSIS [None]
